FAERS Safety Report 4816876-X (Version None)
Quarter: 2005Q4

REPORT INFORMATION
  Report Type: 
  Country: None (occurrence: None)
  Receive Date: 20051031
  Receipt Date: 20051031
  Transmission Date: 20060501
  Serious: Yes (Other)
  Sender: FDA-Public Use
  Company Number: None

PATIENT
  Age: 88 Year
  Sex: Female
  Weight: 53.978 kg

DRUGS (2)
  1. LEVOTHYROXINE  100MCG  JEROME STEVENS PHARMACEUTICALS [Suspect]
     Indication: HYPOTHYROIDISM
     Dosage: ONE DAILY PO
     Route: 048
     Dates: start: 20051011, end: 20051018
  2. BENADRYL [Concomitant]

REACTIONS (3)
  - DRUG INEFFECTIVE [None]
  - PRURITUS [None]
  - RASH ERYTHEMATOUS [None]
